FAERS Safety Report 5933429-0 (Version None)
Quarter: 2008Q4

REPORT INFORMATION
  Report Type: 
  Country: None (occurrence: None)
  Receive Date: 20081028
  Receipt Date: 20081024
  Transmission Date: 20090506
  Serious: Yes (Hospitalization)
  Sender: FDA-Public Use
  Company Number: US-GILEAD-2008-0018710

PATIENT
  Sex: Male
  Weight: 118.04 kg

DRUGS (16)
  1. LETAIRIS [Suspect]
     Indication: COR PULMONALE CHRONIC
     Route: 048
     Dates: start: 20080909, end: 20081020
  2. MELOXICAM [Concomitant]
     Route: 048
  3. GEMFIBROZIL [Concomitant]
     Route: 048
  4. PROTONIX [Concomitant]
     Route: 048
  5. LASIX [Concomitant]
     Route: 048
  6. TYLENOL [Concomitant]
     Route: 048
  7. GLIPIZIDE [Concomitant]
     Route: 048
  8. LANTUS [Concomitant]
     Route: 058
  9. METFORMIN HCL [Concomitant]
     Route: 048
  10. ASPIRIN [Concomitant]
     Route: 048
  11. ADVAIR DISKUS 100/50 [Concomitant]
     Route: 055
  12. TOPROL-XL [Concomitant]
     Route: 048
  13. SPIRIVA [Concomitant]
     Route: 055
  14. HYDROCODONE/APAP [Concomitant]
     Route: 048
  15. ISOSORBIDE  MN ER [Concomitant]
     Route: 048
  16. AZOR [Concomitant]
     Route: 048

REACTIONS (4)
  - ABDOMINAL DISTENSION [None]
  - CHEST PAIN [None]
  - OEDEMA PERIPHERAL [None]
  - PERICARDIAL EFFUSION [None]
